FAERS Safety Report 16673684 (Version 1)
Quarter: 2019Q3

REPORT INFORMATION
  Report Type: Spontaneous
  Country: GB (occurrence: GB)
  Receive Date: 20190806
  Receipt Date: 20190806
  Transmission Date: 20191004
  Serious: Yes (Life-Threatening)
  Sender: FDA-Public Use
  Company Number: GB-PFIZER INC-2019332261

PATIENT
  Age: 59 Year
  Sex: Female
  Weight: 61 kg

DRUGS (1)
  1. CHAMPIX [Suspect]
     Active Substance: VARENICLINE TARTRATE
     Indication: SMOKING CESSATION THERAPY
     Dosage: 0.5MG/1MG AS PER MANUFACTURER^S INSTRUCTIONS (CHAMPIX TITRATION PACK)
     Route: 048
     Dates: start: 20190610, end: 20190625

REACTIONS (9)
  - Tearfulness [Recovering/Resolving]
  - Eye irritation [Recovering/Resolving]
  - Mood altered [Recovering/Resolving]
  - Personality change [Recovering/Resolving]
  - Depression [Recovering/Resolving]
  - Lethargy [Recovering/Resolving]
  - Agitation [Recovering/Resolving]
  - Suicidal ideation [Recovering/Resolving]
  - Insomnia [Recovering/Resolving]

NARRATIVE: CASE EVENT DATE: 20190610
